FAERS Safety Report 5067520-0 (Version None)
Quarter: 2006Q3

REPORT INFORMATION
  Report Type: 
  Country: None (occurrence: None)
  Receive Date: 20060728
  Receipt Date: 20060712
  Transmission Date: 20061208
  Serious: Yes (Hospitalization)
  Sender: FDA-Public Use
  Company Number: US200607000743

PATIENT
  Age: 39 Year
  Sex: Male
  Weight: 124.7 kg

DRUGS (1)
  1. ZYPREXA [Suspect]
     Dates: start: 20020201, end: 20030101

REACTIONS (2)
  - DIABETES MELLITUS [None]
  - MYOCARDIAL INFARCTION [None]
